FAERS Safety Report 4762734-9 (Version None)
Quarter: 2005Q3

REPORT INFORMATION
  Report Type: 
  Country: None (occurrence: None)
  Receive Date: 20050907
  Receipt Date: 20041207
  Transmission Date: 20060218
  Serious: Yes (Other)
  Sender: FDA-Public Use
  Company Number: US-MERCK-0412USA00795

PATIENT
  Age: 47 Year
  Sex: Female
  Weight: 66 kg

DRUGS (6)
  1. VIOXX [Suspect]
     Route: 048
  2. NICOTINE [Suspect]
     Indication: EX-SMOKER
     Route: 065
  3. ALBUTEROL [Concomitant]
     Indication: ASTHMA
     Route: 065
  4. FLUTICASONE PROPIONATE [Concomitant]
     Indication: ASTHMA
     Route: 065
  5. FLUTICASONE PROPIONATE [Concomitant]
     Route: 065
  6. IPRATROPIUM BROMIDE [Concomitant]
     Indication: ASTHMA
     Route: 065

REACTIONS (1)
  - CEREBROVASCULAR ACCIDENT [None]
